FAERS Safety Report 25651453 (Version 2)
Quarter: 2025Q4

REPORT INFORMATION
  Report Type: Spontaneous
  Country: US (occurrence: US)
  Receive Date: 20250806
  Receipt Date: 20251010
  Transmission Date: 20260117
  Serious: Yes (Other)
  Sender: NOVARTIS
  Company Number: US-002147023-NVSC2025US123380

PATIENT
  Sex: Female

DRUGS (4)
  1. LETROZOLE [Suspect]
     Active Substance: LETROZOLE
     Indication: Product used for unknown indication
     Dosage: 125 MG
     Route: 048
     Dates: start: 20240518
  2. LETROZOLE [Suspect]
     Active Substance: LETROZOLE
     Dosage: 100 MG
     Route: 065
  3. LISINOPRIL [Suspect]
     Active Substance: LISINOPRIL
     Indication: Blood pressure measurement
     Dosage: UNK
     Route: 065
  4. IBRANCE [Suspect]
     Active Substance: PALBOCICLIB
     Indication: Product used for unknown indication
     Dosage: 1 DOSAGE FORM, QD (QUANTITY:21 DIRECTIONS SIG:TAKE 1 TABLET DAILY DAYS 1- 21 OF 28 DAY CYCLE REFILLS
     Route: 065

REACTIONS (3)
  - Metastases to lung [Unknown]
  - Hormone receptor positive breast cancer [Unknown]
  - Pancytopenia [Unknown]
